FAERS Safety Report 5715273-2 (Version None)
Quarter: 2008Q2

REPORT INFORMATION
  Report Type: 
  Country: None (occurrence: None)
  Receive Date: 20080422
  Receipt Date: 20080409
  Transmission Date: 20081010
  Serious: Yes (Hospitalization)
  Sender: FDA-Public Use
  Company Number: GXKR2008US03410

PATIENT
  Age: 64 Year
  Sex: Female

DRUGS (2)
  1. CLOZAPINE [Suspect]
     Indication: SCHIZOAFFECTIVE DISORDER
  2. CIPROFLOXACIN [Suspect]
     Indication: URINARY TRACT INFECTION

REACTIONS (16)
  - ANTIPSYCHOTIC DRUG LEVEL INCREASED [None]
  - CARDIOMYOPATHY [None]
  - CONFUSIONAL STATE [None]
  - DELIRIUM [None]
  - DRUG INTERACTION [None]
  - DRUG INTOLERANCE [None]
  - DRUG TOXICITY [None]
  - ELECTROCARDIOGRAM QT PROLONGED [None]
  - HYPOTENSION [None]
  - IRRITABILITY [None]
  - MYOCARDITIS [None]
  - PERIPHERAL COLDNESS [None]
  - SOMNOLENCE [None]
  - TOBACCO INTERACTION [None]
  - URINARY TRACT INFECTION [None]
  - UROSEPSIS [None]
